APPROVED DRUG PRODUCT: UNIPEN
Active Ingredient: NAFCILLIN SODIUM
Strength: EQ 500MG BASE/VIAL **Federal Register determination that product was not discontinued or withdrawn for safety or effectiveness reasons**
Dosage Form/Route: INJECTABLE;INJECTION
Application: N050320 | Product #001
Applicant: WYETH AYERST LABORATORIES
Approved: Approved Prior to Jan 1, 1982 | RLD: Yes | RS: No | Type: DISCN